FAERS Safety Report 21592907 (Version 1)
Quarter: 2022Q4

REPORT INFORMATION
  Report Type: Spontaneous
  Country: GB (occurrence: GB)
  Receive Date: 20221114
  Receipt Date: 20221114
  Transmission Date: 20230113
  Serious: Yes (Hospitalization)
  Sender: FDA-Public Use
  Company Number: GB-009507513-2211GBR004169

PATIENT
  Age: 32 Year
  Sex: Female

DRUGS (8)
  1. SUGAMMADEX SODIUM [Suspect]
     Active Substance: SUGAMMADEX SODIUM
     Indication: Neuromuscular blockade reversal
     Dosage: 200 MILLIGRAM, BID
  2. PROPOFOL [Concomitant]
     Active Substance: PROPOFOL
  3. SUCCINYLCHOLINE CHLORIDE [Concomitant]
     Active Substance: SUCCINYLCHOLINE CHLORIDE
  4. FENTANYL [Concomitant]
     Active Substance: FENTANYL
  5. OXYTOCIN [Concomitant]
     Active Substance: OXYTOCIN
  6. CEFUROXIME [Concomitant]
     Active Substance: CEFUROXIME
  7. METRONIDAZOLE [Concomitant]
     Active Substance: METRONIDAZOLE
  8. MORPHINE [Concomitant]
     Active Substance: MORPHINE

REACTIONS (1)
  - Therapeutic product effect incomplete [Recovered/Resolved]
